FAERS Safety Report 10176874 (Version 1)
Quarter: 2014Q2

REPORT INFORMATION
  Report Type: Spontaneous
  Country: US (occurrence: US)
  Receive Date: 20140516
  Receipt Date: 20140516
  Transmission Date: 20141212
  Serious: Yes (Other)
  Sender: FDA-Public Use
  Company Number: US-SHIRE-US201402081

PATIENT
  Age: 12 Year
  Sex: Female

DRUGS (2)
  1. INTUNIV [Suspect]
     Indication: ATTENTION DEFICIT/HYPERACTIVITY DISORDER
     Dosage: 3 MG, 1X/DAY:QD
     Route: 048
     Dates: start: 2014, end: 2014
  2. INTUNIV [Suspect]
     Dosage: 2 MG, UNKNOWN
     Route: 048
     Dates: end: 2014

REACTIONS (1)
  - Suicidal ideation [Unknown]
